FAERS Safety Report 17044073 (Version 1)
Quarter: 2019Q4

REPORT INFORMATION
  Report Type: Spontaneous
  Country: US (occurrence: US)
  Receive Date: 20191017
  Receipt Date: 20191017
  Transmission Date: 20200122
  Serious: Yes (Other)
  Sender: FDA-Public Use
  Company Number: None

PATIENT
  Age: 68 Year
  Sex: Male
  Weight: .11 kg

DRUGS (7)
  1. ATORVASTATIN GENERIC FOR LIPITOR [Suspect]
     Active Substance: ATORVASTATIN
     Indication: BLOOD CHOLESTEROL INCREASED
     Dosage: ?          QUANTITY:10 MG MILLIGRAM(S);?
     Route: 048
  2. OMEPRAZOLE GENERIC FOR PRILOSEC [Suspect]
     Active Substance: OMEPRAZOLE
     Indication: GASTROOESOPHAGEAL REFLUX DISEASE
     Dosage: ?          QUANTITY:20 MG MILLIGRAM(S);OTHER FREQUENCY:A.M.;?
     Route: 048
  3. FLUTICASONE. [Concomitant]
     Active Substance: FLUTICASONE
  4. MONTELUKAST [Concomitant]
     Active Substance: MONTELUKAST SODIUM
  5. QUETIAPINE. [Concomitant]
     Active Substance: QUETIAPINE
  6. FLUPHENAZINE [Concomitant]
     Active Substance: FLUPHENAZINE
  7. ASPIRIN 81MG [Concomitant]
     Active Substance: ASPIRIN

REACTIONS (5)
  - Bone pain [None]
  - Product dispensing error [None]
  - Mobility decreased [None]
  - Angina pectoris [None]
  - Insomnia [None]

NARRATIVE: CASE EVENT DATE: 20191005
